FAERS Safety Report 8074179-7 (Version None)
Quarter: 2011Q4

REPORT INFORMATION
  Report Type: 
  Country: None (occurrence: None)
  Receive Date: 20111221
  Receipt Date: 20110901
  Transmission Date: 20120403
  Serious: Yes (Life-Threatening, Hospitalization)
  Sender: FDA-Public Use
  Company Number: PHEH2009US13922

PATIENT
  Sex: Male

DRUGS (4)
  1. CAMPATH [Suspect]
  2. BENDAMUSTNE HYDROCHLORIDE(BENDAMUSTINE HYDROCHLORIDE) [Suspect]
  3. EXJADE [Suspect]
     Indication: IRON OVERLOAD
     Dosage: 500 MG, QID, ORAL
     Route: 048
     Dates: start: 20090226, end: 20090911
  4. EXJADE [Suspect]
     Indication: CHRONIC LYMPHOCYTIC LEUKAEMIA
     Dosage: 500 MG, QID, ORAL
     Route: 048
     Dates: start: 20090226, end: 20090911

REACTIONS (2)
  - CHRONIC LYMPHOCYTIC LEUKAEMIA [None]
  - THROMBOCYTOPENIA [None]
